FAERS Safety Report 5826299-2 (Version None)
Quarter: 2008Q3

REPORT INFORMATION
  Report Type: 
  Country: None (occurrence: None)
  Receive Date: 20080729
  Receipt Date: 20080724
  Transmission Date: 20090109
  Serious: Yes (Hospitalization)
  Sender: FDA-Public Use
  Company Number: CH-MERCK-0807CHE00011

PATIENT
  Age: 60 Year
  Sex: Male
  Weight: 105 kg

DRUGS (14)
  1. JANUVIA [Suspect]
     Indication: TYPE 2 DIABETES MELLITUS
     Route: 048
     Dates: start: 20071109
  2. METFORMIN HYDROCHLORIDE [Concomitant]
     Indication: TYPE 2 DIABETES MELLITUS
     Route: 048
     Dates: end: 20071108
  3. METFORMIN HYDROCHLORIDE [Concomitant]
     Route: 048
     Dates: end: 20080424
  4. METFORMIN HYDROCHLORIDE [Concomitant]
     Route: 048
     Dates: start: 20071109
  5. GLICLAZIDE [Concomitant]
     Indication: TYPE 2 DIABETES MELLITUS
     Route: 048
     Dates: start: 20070601
  6. ASPIRIN [Concomitant]
     Indication: CORONARY ARTERY DISEASE
     Route: 048
  7. ASPIRIN [Concomitant]
     Indication: STENT PLACEMENT
     Route: 048
  8. ATORVASTATIN CALCIUM [Concomitant]
     Indication: HYPERCHOLESTEROLAEMIA
     Route: 048
  9. BISOPROLOL FUMARATE [Concomitant]
     Indication: CORONARY ARTERY DISEASE
     Route: 048
  10. BISOPROLOL FUMARATE [Concomitant]
     Indication: HYPERTONIA
     Route: 048
  11. AMLODIPINE BESYLATE AND VALSARTAN [Concomitant]
     Indication: CORONARY ARTERY DISEASE
     Route: 048
     Dates: start: 20070615
  12. AMLODIPINE BESYLATE AND VALSARTAN [Concomitant]
     Indication: HYPERTONIA
     Route: 048
     Dates: start: 20070615
  13. CLOPIDOGREL BISULFATE [Concomitant]
     Indication: CORONARY ARTERY DISEASE
     Route: 048
     Dates: start: 20071118
  14. CLOPIDOGREL BISULFATE [Concomitant]
     Indication: STENT PLACEMENT
     Route: 048
     Dates: start: 20071118

REACTIONS (1)
  - ACUTE CORONARY SYNDROME [None]
